FAERS Safety Report 23231826 (Version 2)
Quarter: 2024Q2

REPORT INFORMATION
  Report Type: Spontaneous
  Country: JP (occurrence: JP)
  Receive Date: 20231127
  Receipt Date: 20240408
  Transmission Date: 20240716
  Serious: Yes (Disabling, Other)
  Sender: FDA-Public Use
  Company Number: JP-ELI_LILLY_AND_COMPANY-JP202311011239AA

PATIENT
  Age: 55 Year
  Sex: Male
  Weight: 74 kg

DRUGS (7)
  1. NECITUMUMAB [Suspect]
     Active Substance: NECITUMUMAB
     Indication: Squamous cell carcinoma of lung
     Dosage: 800 MG, CYCLICAL
     Route: 041
     Dates: start: 20231003, end: 20240124
  2. GEMCITABINE HYDROCHLORIDE [Suspect]
     Active Substance: GEMCITABINE HYDROCHLORIDE
     Indication: Squamous cell carcinoma of lung
     Dosage: 1440 MG/M2, CYCLICAL
     Route: 041
     Dates: start: 20231003, end: 20231206
  3. CISPLATIN [Suspect]
     Active Substance: CISPLATIN
     Indication: Squamous cell carcinoma of lung
     Dosage: 100 MG/M2, CYCLICAL
     Route: 041
     Dates: start: 20231003, end: 20231206
  4. MAGNESIUM SULFATE [MAGNESIUM SULFATE HEPTAHYD [Concomitant]
     Indication: Electrolyte substitution therapy
     Dosage: UNK
     Dates: start: 20231003, end: 20240124
  5. PALONOSETRON HYDROCHLORIDE [Concomitant]
     Active Substance: PALONOSETRON HYDROCHLORIDE
     Dosage: UNK
     Dates: start: 20231003, end: 20231206
  6. FOSNETUPITANT CHLORIDE HYDROCHLORIDE [Concomitant]
     Active Substance: FOSNETUPITANT CHLORIDE HYDROCHLORIDE
     Dosage: UNK
     Dates: start: 20231003, end: 20231206
  7. DEXAMETHASONE SODIUM PHOSPHATE [Concomitant]
     Active Substance: DEXAMETHASONE PHOSPHATE\DEXAMETHASONE SODIUM PHOSPHATE
     Indication: Vomiting
     Dosage: UNK
     Dates: start: 20231003, end: 20231206

REACTIONS (5)
  - Neutropenia [Recovered/Resolved]
  - Paronychia [Recovering/Resolving]
  - Dermatitis acneiform [Recovering/Resolving]
  - Malignant neoplasm progression [Unknown]
  - Onychoclasis [Recovering/Resolving]

NARRATIVE: CASE EVENT DATE: 20231001
